FAERS Safety Report 19686441 (Version 1)
Quarter: 2021Q3

REPORT INFORMATION
  Report Type: Spontaneous
  Country: US (occurrence: US)
  Receive Date: 20210811
  Receipt Date: 20210811
  Transmission Date: 20211014
  Serious: Yes (Death, Hospitalization)
  Sender: FDA-Public Use
  Company Number: US-MYLANLABS-2021M1049507

PATIENT
  Age: 82 Year
  Sex: Male

DRUGS (4)
  1. VITAMIN?B12?RATIOPHARM [Concomitant]
     Indication: PERNICIOUS ANAEMIA
     Route: 048
  2. METHOTREXATE. [Suspect]
     Active Substance: METHOTREXATE
     Indication: RHEUMATOID ARTHRITIS
  3. METHOTREXATE. [Suspect]
     Active Substance: METHOTREXATE
     Indication: CYTOPENIA
  4. METHOTREXATE. [Suspect]
     Active Substance: METHOTREXATE
     Indication: LARGE GRANULAR LYMPHOCYTOSIS
     Dosage: 12 MILLIGRAM, QW
     Route: 048
     Dates: start: 201012

REACTIONS (5)
  - Hypotension [Fatal]
  - Respiratory failure [Fatal]
  - Malignant neoplasm progression [Fatal]
  - Acute kidney injury [Fatal]
  - Prostate cancer metastatic [Fatal]

NARRATIVE: CASE EVENT DATE: 2011
